FAERS Safety Report 13905429 (Version 1)
Quarter: 2017Q3

REPORT INFORMATION
  Report Type: Spontaneous
  Country: US (occurrence: US)
  Receive Date: 20170825
  Receipt Date: 20170825
  Transmission Date: 20171127
  Serious: No
  Sender: FDA-Public Use
  Company Number: US-TEVA-732604ACC

PATIENT
  Age: 83 Year
  Sex: Female
  Weight: 64 kg

DRUGS (5)
  1. CALCIUM [Concomitant]
     Active Substance: CALCIUM
     Indication: BONE DISORDER
  2. PRESERVISION [Concomitant]
     Active Substance: MINERALS\VITAMINS
     Indication: GLAUCOMA
  3. LIPOFLAVONOID [Concomitant]
     Active Substance: UNSPECIFIED INGREDIENT
     Indication: TINNITUS
  4. ALENDRONATE SODIUM. [Suspect]
     Active Substance: ALENDRONATE SODIUM
     Dosage: ONLY TOOK ONE TIME
     Dates: start: 20161225
  5. AMOXICILLIN. [Concomitant]
     Active Substance: AMOXICILLIN

REACTIONS (3)
  - Pain [Recovered/Resolved]
  - Impaired driving ability [Recovered/Resolved]
  - Musculoskeletal stiffness [Recovered/Resolved]

NARRATIVE: CASE EVENT DATE: 20161226
